FAERS Safety Report 4972147-2 (Version None)
Quarter: 2006Q2

REPORT INFORMATION
  Report Type: 
  Country: None (occurrence: None)
  Receive Date: 20060413
  Receipt Date: 20060331
  Transmission Date: 20061013
  Serious: Yes (Death, Hospitalization)
  Sender: FDA-Public Use
  Company Number: AU-NOVOPROD-252063

PATIENT
  Age: 51 Year
  Sex: Female
  Weight: 90 kg

DRUGS (5)
  1. NOVOSEVEN [Suspect]
     Indication: HAEMORRHAGE
     Dosage: 14.4 MG, UNK
     Dates: start: 20051106, end: 20051107
  2. RED BLOOD CELLS [Concomitant]
     Dosage: 16 IU, UNK
  3. FRESH FROZEN PLASMA [Concomitant]
     Dosage: 8 IU, UNK
  4. KRIOPRECIPITAT [Concomitant]
     Dosage: 10 IU, UNK
  5. PLATELETS [Concomitant]
     Dosage: 1 IU, UNK

REACTIONS (1)
  - DISSEMINATED INTRAVASCULAR COAGULATION [None]
